FAERS Safety Report 5951968-3 (Version None)
Quarter: 2008Q4

REPORT INFORMATION
  Report Type: 
  Country: None (occurrence: None)
  Receive Date: 20081113
  Receipt Date: 20071005
  Transmission Date: 20090506
  Serious: No
  Sender: FDA-Public Use
  Company Number: A0686713A

PATIENT
  Sex: Female

DRUGS (1)
  1. COREG [Suspect]
     Dosage: 3.125MG TWICE PER DAY
     Route: 065
     Dates: start: 20070501

REACTIONS (3)
  - COUGH [None]
  - HYPERSENSITIVITY [None]
  - ILL-DEFINED DISORDER [None]
